FAERS Safety Report 9023862 (Version 2)
Quarter: 2013Q1

REPORT INFORMATION
  Report Type: Spontaneous
  Country: JP (occurrence: JP)
  Receive Date: 20130121
  Receipt Date: 20130211
  Transmission Date: 20140127
  Serious: Yes (Hospitalization)
  Sender: FDA-Public Use
  Company Number: JP-ELI_LILLY_AND_COMPANY-JP201301003048

PATIENT
  Age: 84 Year
  Sex: Female

DRUGS (3)
  1. FORTEO [Suspect]
     Indication: OSTEOPOROSIS
     Dosage: UNK
     Route: 058
     Dates: start: 201201
  2. GLAKAY [Concomitant]
     Indication: OSTEOPOROSIS
  3. FEBUXOSTAT [Concomitant]

REACTIONS (1)
  - Thyroid cancer [Unknown]
